FAERS Safety Report 25041020 (Version 1)
Quarter: 2025Q1

REPORT INFORMATION
  Report Type: Spontaneous
  Country: US (occurrence: None)
  Receive Date: 20250305
  Receipt Date: 20250305
  Transmission Date: 20250409
  Serious: Yes (Other)
  Sender: FDA-CTU
  Company Number: None

PATIENT
  Age: 64 Year
  Sex: Female

DRUGS (2)
  1. PIRFENIDONE [Suspect]
     Active Substance: PIRFENIDONE
     Indication: Lung disorder
     Dosage: TAKE 1 TABLET BY MOUTH THREE TIMES DAILY
     Route: 048
     Dates: start: 20221223, end: 20250220
  2. R0SUVASTATIN [Concomitant]

REACTIONS (2)
  - Lung transplant [None]
  - Therapy cessation [None]

NARRATIVE: CASE EVENT DATE: 20250220
